FAERS Safety Report 4943603-8 (Version None)
Quarter: 2006Q1

REPORT INFORMATION
  Report Type: 
  Country: None (occurrence: None)
  Receive Date: 20060314
  Receipt Date: 20060306
  Transmission Date: 20060701
  Serious: Yes (Death)
  Sender: FDA-Public Use
  Company Number: CA-ABBOTT-06P-028-0327263-00

PATIENT
  Age: 54 Year
  Sex: Male

DRUGS (2)
  1. MERIDIA [Suspect]
     Indication: DRUG USE FOR UNKNOWN INDICATION
     Route: 048
     Dates: start: 20060301
  2. NOT REPORTED MEDICATION [Concomitant]
     Indication: HYPERTENSION

REACTIONS (1)
  - ARRHYTHMIA [None]
